FAERS Safety Report 6180981-9 (Version None)
Quarter: 2009Q2

REPORT INFORMATION
  Report Type: 
  Country: None (occurrence: None)
  Receive Date: 20090504
  Receipt Date: 20090504
  Transmission Date: 20091009
  Serious: Yes (Other)
  Sender: FDA-Public Use
  Company Number: None

PATIENT
  Age: 65 Year
  Sex: Female
  Weight: 54.4316 kg

DRUGS (2)
  1. ADVAIR DISKUS 100/50 [Suspect]
     Indication: ASTHMA
     Dosage: 100/50 MCG 2X DAILY OTHER
     Route: 050
     Dates: start: 20080202, end: 20080329
  2. ADVAIR DISKUS 250/50 [Suspect]
     Dosage: 250/50 MCG 2X DAILY OTHER
     Route: 050
     Dates: start: 20070801, end: 20071003

REACTIONS (5)
  - ASTHMA [None]
  - CONDITION AGGRAVATED [None]
  - DRUG INEFFECTIVE [None]
  - MIGRAINE [None]
  - REBOUND EFFECT [None]
